FAERS Safety Report 22765722 (Version 2)
Quarter: 2024Q2

REPORT INFORMATION
  Report Type: Spontaneous
  Country: US (occurrence: US)
  Receive Date: 20230731
  Receipt Date: 20240401
  Transmission Date: 20240715
  Serious: No
  Sender: FDA-Public Use
  Company Number: US-ABBVIE-5344516

PATIENT
  Sex: Female

DRUGS (1)
  1. UBRELVY [Suspect]
     Active Substance: UBROGEPANT
     Indication: Migraine
     Dosage: FORM STRENGTH: 100 MG
     Route: 048

REACTIONS (7)
  - Photophobia [Unknown]
  - Product use in unapproved indication [Unknown]
  - Nausea [Unknown]
  - Muscle spasms [Unknown]
  - Aphasia [Unknown]
  - Pain [Unknown]
  - Aura [Unknown]
